FAERS Safety Report 7556222-4 (Version None)
Quarter: 2011Q2

REPORT INFORMATION
  Report Type: 
  Country: None (occurrence: None)
  Receive Date: 20110615
  Receipt Date: 20110615
  Transmission Date: 20111010
  Serious: No
  Sender: FDA-Public Use
  Company Number: None

PATIENT
  Age: 59 Year
  Sex: Female
  Weight: 95.709 kg

DRUGS (2)
  1. LYRICA [Suspect]
     Indication: PARAESTHESIA
     Dosage: 50 MG. ONCE A DAY PO
     Route: 048
     Dates: start: 20110609, end: 20110610
  2. LYRICA [Suspect]
     Indication: NEUROPATHY PERIPHERAL
     Dosage: 50 MG. ONCE A DAY PO
     Route: 048
     Dates: start: 20110609, end: 20110610

REACTIONS (5)
  - TOOTHACHE [None]
  - ORAL MUCOSAL ERYTHEMA [None]
  - HYPERSENSITIVITY [None]
  - PAIN IN JAW [None]
  - OEDEMA MOUTH [None]
